FAERS Safety Report 14681067 (Version 1)
Quarter: 2018Q1

REPORT INFORMATION
  Report Type: Spontaneous
  Country: US (occurrence: US)
  Receive Date: 20180326
  Receipt Date: 20180326
  Transmission Date: 20180509
  Serious: Yes (Death, Other)
  Sender: FDA-Public Use
  Company Number: US-BRISTOL-MYERS SQUIBB COMPANY-BMS-2018-024683

PATIENT
  Sex: Male

DRUGS (1)
  1. ETOPOPHOS [Suspect]
     Active Substance: ETOPOSIDE PHOSPHATE
     Indication: LUNG NEOPLASM MALIGNANT
     Dosage: 190 MG, UNK
     Route: 065
     Dates: start: 20180126, end: 20180222

REACTIONS (1)
  - Death [Fatal]
